FAERS Safety Report 7423297-2 (Version None)
Quarter: 2011Q2

REPORT INFORMATION
  Report Type: 
  Country: None (occurrence: None)
  Receive Date: 20110419
  Receipt Date: 20110408
  Transmission Date: 20111010
  Serious: Yes (Other)
  Sender: FDA-Public Use
  Company Number: JP-ROCHE-766260

PATIENT
  Age: 6 Year
  Sex: Female
  Weight: 18 kg

DRUGS (5)
  1. ASVERIN [Concomitant]
     Dosage: FORM: PERORAL AGENT.
     Route: 048
  2. ANHIBA [Concomitant]
     Dosage: FORM: SUPPOSITORIAE RECTALE
     Route: 054
  3. TAMIFLU [Suspect]
     Route: 048
     Dates: start: 20110303, end: 20110304
  4. PULSMARIN A [Concomitant]
     Dosage: FORM: PERORAL AGENT.
     Route: 048
  5. PERIACTIN [Concomitant]
     Dosage: FORM: PERORAL AGENT.
     Route: 048

REACTIONS (1)
  - ABNORMAL BEHAVIOUR [None]
